FAERS Safety Report 6336842-5 (Version None)
Quarter: 2009Q3

REPORT INFORMATION
  Report Type: 
  Country: None (occurrence: None)
  Receive Date: 20090901
  Receipt Date: 20090825
  Transmission Date: 20100115
  Serious: Yes (Hospitalization)
  Sender: FDA-Public Use
  Company Number: US-JNJCH-2009023183

PATIENT
  Age: 46 Year
  Sex: Male

DRUGS (2)
  1. EUCALYPTOL/MENTHOL/METHYLSALICYLATE/THYMOL [Suspect]
     Indication: ALCOHOL ABUSE
     Dosage: TEXT:5-8 QUARTS OF MOUTHWASH
     Route: 048
  2. ISOPROPYL ALCOHOL COMPOUND LIQUID [Suspect]
     Indication: ALCOHOL ABUSE
     Dosage: TEXT:2 BOTTLES OF RUBING ALCOHOL
     Route: 048

REACTIONS (3)
  - DRUG ABUSE [None]
  - DRUG TOXICITY [None]
  - INCORRECT ROUTE OF DRUG ADMINISTRATION [None]
